FAERS Safety Report 6712149-9 (Version None)
Quarter: 2010Q2

REPORT INFORMATION
  Report Type: 
  Country: None (occurrence: None)
  Receive Date: 20100505
  Receipt Date: 20100423
  Transmission Date: 20101027
  Serious: Yes (Other)
  Sender: FDA-Public Use
  Company Number: AU-ELI_LILLY_AND_COMPANY-AU201003005424

PATIENT
  Age: 59 Year
  Sex: Female

DRUGS (4)
  1. FORTEO [Suspect]
     Indication: OSTEOPOROSIS
     Dosage: 20 UG, DAILY (1/D)
     Route: 058
     Dates: start: 20090625, end: 20100223
  2. ZOTON [Concomitant]
     Indication: GASTROOESOPHAGEAL REFLUX DISEASE
     Dosage: UNK, DAILY (1/D)
     Route: 065
  3. CALCICHEW [Concomitant]
     Indication: OSTEOPOROSIS
     Dosage: UNK, 2/D
     Route: 065
  4. URSODEOXYCHOLIC ACID [Concomitant]
     Indication: BILIARY CIRRHOSIS PRIMARY
     Dosage: UNK, 3/D
     Route: 065

REACTIONS (2)
  - BILIARY CIRRHOSIS PRIMARY [None]
  - BLOOD ALKALINE PHOSPHATASE INCREASED [None]
